FAERS Safety Report 17035123 (Version 2)
Quarter: 2019Q4

REPORT INFORMATION
  Report Type: Spontaneous
  Country: PT (occurrence: PT)
  Receive Date: 20191115
  Receipt Date: 20191227
  Transmission Date: 20200122
  Serious: Yes (Other)
  Sender: FDA-Public Use
  Company Number: PT-ASTRAZENECA-2019SF61032

PATIENT
  Age: 12 Year
  Sex: Female

DRUGS (1)
  1. PULMICORT TURBUHALER [Suspect]
     Active Substance: BUDESONIDE
     Route: 055

REACTIONS (2)
  - Device issue [Unknown]
  - Asthma [Unknown]
